FAERS Safety Report 9001178 (Version 2)
Quarter: 2013Q4

REPORT INFORMATION
  Report Type: Report from Study
  Country: NL (occurrence: NL)
  Receive Date: 20130107
  Receipt Date: 20131008
  Transmission Date: 20140711
  Serious: Yes (Death)
  Sender: FDA-Public Use
  Company Number: PHHY2013NL001278

PATIENT
  Age: 76 Year
  Sex: Female

DRUGS (10)
  1. ACLASTA [Suspect]
     Indication: OESOPHAGEAL HYPOMOTILITY
     Dosage: 5 MG ONCE PER 364 DAYS
     Route: 042
     Dates: start: 20120124
  2. ACLASTA [Suspect]
     Indication: SYSTEMIC SCLEROSIS
  3. ACLASTA [Suspect]
     Indication: OFF LABEL USE
  4. ENALAPRIL [Concomitant]
     Dosage: UNK
  5. NIFEDIPINE [Concomitant]
     Dosage: UNK
  6. ACETYLSALICYLIC ACID [Concomitant]
     Dosage: UNK
  7. LANSOPRAZOLE [Concomitant]
     Dosage: UNK
  8. HYDROCHLOROTHIAZIDE [Concomitant]
     Dosage: UNK
  9. SIMVASTATIN [Concomitant]
     Dosage: UNK
  10. PARACOD [Concomitant]
     Dosage: UNK

REACTIONS (1)
  - Sudden death [Fatal]
